FAERS Safety Report 18919300 (Version 2)
Quarter: 2021Q3

REPORT INFORMATION
  Report Type: Report from Study
  Country: US (occurrence: US)
  Receive Date: 20210220
  Receipt Date: 20210805
  Transmission Date: 20211014
  Serious: No
  Sender: FDA-Public Use
  Company Number: NVSC2021US038975

PATIENT
  Sex: Female

DRUGS (1)
  1. ENTRESTO [Suspect]
     Active Substance: SACUBITRIL\VALSARTAN
     Indication: PRODUCT USED FOR UNKNOWN INDICATION
     Dosage: 1 DF, TID (49/51 3 TABLETS PER DAY)
     Route: 048
     Dates: start: 2020

REACTIONS (2)
  - Weight fluctuation [Unknown]
  - Ejection fraction decreased [Recovering/Resolving]
